FAERS Safety Report 9243047 (Version 2)
Quarter: 2013Q2

REPORT INFORMATION
  Report Type: Spontaneous
  Country: US (occurrence: US)
  Receive Date: 20130419
  Receipt Date: 20130521
  Transmission Date: 20140414
  Serious: Yes (Other)
  Sender: FDA-Public Use
  Company Number: US-009507513-1304USA007036

PATIENT
  Age: 58 Year
  Sex: Female

DRUGS (7)
  1. TEMODAR [Suspect]
     Indication: OLIGOASTROCYTOMA
     Dosage: 200-250 MG DAILY
     Route: 048
     Dates: start: 2004
  2. TEMODAR [Suspect]
     Dosage: 200 MG, QD
  3. LEVETIRACETAM [Concomitant]
  4. DEXAMETHASONE [Concomitant]
  5. ALENDRONATE SODIUM / CHOLCALCIFEROL TABLETS [Concomitant]
  6. DONEPEZIL HYDROCHLORIDE [Concomitant]
  7. DAPSONE [Concomitant]

REACTIONS (1)
  - Drug-induced liver injury [Unknown]
